FAERS Safety Report 13055077 (Version 3)
Quarter: 2019Q1

REPORT INFORMATION
  Report Type: Spontaneous
  Country: US (occurrence: US)
  Receive Date: 20161222
  Receipt Date: 20190308
  Transmission Date: 20190417
  Serious: No
  Sender: FDA-Public Use
  Company Number: US-PFIZER INC-2016580065

PATIENT
  Age: 62 Year
  Sex: Male

DRUGS (1)
  1. FUROSEMIDE. [Suspect]
     Active Substance: FUROSEMIDE
     Dosage: UNK

REACTIONS (4)
  - Mood swings [Unknown]
  - Somnolence [Unknown]
  - Fatigue [Unknown]
  - Drug hypersensitivity [Unknown]
